FAERS Safety Report 11221070 (Version 1)
Quarter: 2015Q2

REPORT INFORMATION
  Report Type: Spontaneous
  Country: US (occurrence: US)
  Receive Date: 20150626
  Receipt Date: 20150626
  Transmission Date: 20150821
  Serious: Yes (Other)
  Sender: FDA-Public Use
  Company Number: US-SA-2015SA090400

PATIENT
  Age: 65 Year
  Sex: Female

DRUGS (2)
  1. SOLOSTAR [Concomitant]
     Active Substance: DEVICE
     Dates: start: 2011
  2. LANTUS SOLOSTAR [Suspect]
     Active Substance: INSULIN GLARGINE
     Indication: TYPE 1 DIABETES MELLITUS
     Dosage: DOSE:8 UNIT(S)
     Route: 065
     Dates: start: 2011

REACTIONS (4)
  - Ankle fracture [Unknown]
  - Fall [Unknown]
  - Drug administration error [Unknown]
  - Gait disturbance [Unknown]

NARRATIVE: CASE EVENT DATE: 2011
